FAERS Safety Report 20223347 (Version 1)
Quarter: 2021Q4

REPORT INFORMATION
  Report Type: Report from Study
  Country: US (occurrence: None)
  Receive Date: 20211223
  Receipt Date: 20211223
  Transmission Date: 20220303
  Serious: Yes (Death)
  Sender: FDA-Public Use
  Company Number: US-Merck Healthcare KGaA-9288418

PATIENT
  Age: 76 Year
  Sex: Female

DRUGS (1)
  1. REBIF [Suspect]
     Active Substance: INTERFERON BETA-1A
     Indication: Product used for unknown indication
     Route: 058
     Dates: start: 20060801

REACTIONS (1)
  - Death [Fatal]

NARRATIVE: CASE EVENT DATE: 20211201
